FAERS Safety Report 8785427 (Version 1)
Quarter: 2012Q4

REPORT INFORMATION
  Report Type: Report from Study
  Country: US (occurrence: US)
  Receive Date: 20120914
  Receipt Date: 20120914
  Transmission Date: 20130627
  Serious: Yes (Hospitalization, Other)
  Sender: FDA-Public Use
  Company Number: US-ABBOTT-12P-163-0954229-00

PATIENT
  Age: 58 Year
  Sex: Male
  Weight: 51.3 kg

DRUGS (4)
  1. HUMIRA [Suspect]
     Indication: CROHN^S DISEASE
     Dates: start: 20111019, end: 20120420
  2. AZATHIOPRINE [Concomitant]
     Indication: CROHN^S DISEASE
  3. ENTOCORT [Concomitant]
     Indication: CROHN^S DISEASE
  4. ZOLOFT [Concomitant]
     Indication: DEPRESSION

REACTIONS (6)
  - Fistula [Unknown]
  - Procedural site reaction [Unknown]
  - Colonic stenosis [Unknown]
  - Crohn^s disease [Unknown]
  - Pseudopolyp [Unknown]
  - Crohn^s disease [Recovered/Resolved]
